FAERS Safety Report 14802669 (Version 2)
Quarter: 2019Q2

REPORT INFORMATION
  Report Type: Spontaneous
  Country: US (occurrence: US)
  Receive Date: 20180424
  Receipt Date: 20190531
  Transmission Date: 20190711
  Serious: No
  Sender: FDA-Public Use
  Company Number: US-ACTELION-A-NJ2018-171208

PATIENT
  Sex: Female

DRUGS (1)
  1. OPSUMIT [Suspect]
     Active Substance: MACITENTAN
     Indication: PULMONARY ARTERIAL HYPERTENSION
     Dosage: 10 MG, QD
     Route: 048
     Dates: start: 20141024

REACTIONS (3)
  - Gait inability [Recovered/Resolved]
  - Balance disorder [Recovered/Resolved]
  - Malaise [Unknown]
